FAERS Safety Report 8081479-3 (Version None)
Quarter: 2012Q1

REPORT INFORMATION
  Report Type: 
  Country: None (occurrence: None)
  Receive Date: 20120130
  Receipt Date: 20120118
  Transmission Date: 20120608
  Serious: Yes (Hospitalization)
  Sender: FDA-Public Use
  Company Number: PHHY2012TR004884

PATIENT
  Age: 49 Year
  Sex: Male

DRUGS (1)
  1. IMATINIB MESYLATE [Suspect]
     Indication: CHRONIC MYELOID LEUKAEMIA

REACTIONS (6)
  - ABDOMINAL DISTENSION [None]
  - INTESTINAL DILATATION [None]
  - ABDOMINAL PAIN [None]
  - PALLOR [None]
  - DIFFUSE LARGE B-CELL LYMPHOMA [None]
  - LEUKAEMIC INFILTRATION [None]
